FAERS Safety Report 21595527 (Version 5)
Quarter: 2024Q3

REPORT INFORMATION
  Report Type: Report from Study
  Country: DE (occurrence: DE)
  Receive Date: 20221115
  Receipt Date: 20240801
  Transmission Date: 20241017
  Serious: Yes (Hospitalization, Other)
  Sender: ROCHE
  Company Number: DE-ROCHE-2811595

PATIENT
  Age: 44 Year
  Sex: Female

DRUGS (24)
  1. OCREVUS [Suspect]
     Active Substance: OCRELIZUMAB
     Indication: Relapsing-remitting multiple sclerosis
     Route: 042
     Dates: start: 20210316
  2. OCREVUS [Suspect]
     Active Substance: OCRELIZUMAB
     Route: 042
     Dates: start: 20210330, end: 20210330
  3. OCREVUS [Suspect]
     Active Substance: OCRELIZUMAB
     Dosage: 600 MG EVERY 247 DAY
     Route: 042
  4. COMIRNATY (TOZINAMERAN) [Suspect]
     Active Substance: TOZINAMERAN
     Indication: COVID-19 prophylaxis
     Dosage: FIRST DOSE
     Route: 065
  5. COMIRNATY (TOZINAMERAN) [Suspect]
     Active Substance: TOZINAMERAN
     Dosage: SECOND DOSE
     Route: 065
     Dates: start: 20210730
  6. VESIKUR [Suspect]
     Active Substance: SOLIFENACIN SUCCINATE
     Indication: Product used for unknown indication
     Route: 065
  7. NAPROXEN [Concomitant]
     Active Substance: NAPROXEN
  8. RISPERIDONE [Concomitant]
     Active Substance: RISPERIDONE
  9. CANNABIS SATIVA SUBSP. INDICA TOP [Concomitant]
     Active Substance: CANNABIS SATIVA SUBSP. INDICA TOP
     Dosage: UNK, AS NEEDED (PRESCRIBED BY A DOCTOR)
  10. ZOLMITRIPTAN [Concomitant]
     Active Substance: ZOLMITRIPTAN
     Dosage: 1 PUFF
     Route: 045
  11. CORTISONE [Concomitant]
     Active Substance: CORTISONE
     Route: 042
  12. DIMENHYDRINATE [Concomitant]
     Active Substance: DIMENHYDRINATE
  13. GABAPENTIN [Concomitant]
     Active Substance: GABAPENTIN
  14. TOLPERISONE [Concomitant]
     Active Substance: TOLPERISONE
  15. NARATRIPTAN [Concomitant]
     Active Substance: NARATRIPTAN HYDROCHLORIDE
  16. VIGIL [Concomitant]
  17. BISOPROLOL [Concomitant]
     Active Substance: BISOPROLOL\BISOPROLOL FUMARATE
  18. BISOPROLOL [Concomitant]
     Active Substance: BISOPROLOL\BISOPROLOL FUMARATE
     Dosage: 0-0-1
  19. BISOPROLOL [Concomitant]
     Active Substance: BISOPROLOL\BISOPROLOL FUMARATE
     Dosage: 1-0-0
  20. ACETAMINOPHEN [Concomitant]
     Active Substance: ACETAMINOPHEN
     Dosage: AS REQUIRED
  21. LEVOTHYROXINE SODIUM [Concomitant]
     Active Substance: LEVOTHYROXINE SODIUM
     Dosage: 100/10 MCG IN THE MORNING
  22. RISPERIDONE [Concomitant]
     Active Substance: RISPERIDONE
  23. BISOPROLOL [Concomitant]
     Active Substance: BISOPROLOL\BISOPROLOL FUMARATE
  24. BISOPROLOL [Concomitant]
     Active Substance: BISOPROLOL\BISOPROLOL FUMARATE

REACTIONS (31)
  - Listless [Not Recovered/Not Resolved]
  - Hypotension [Recovered/Resolved]
  - COVID-19 [Recovered/Resolved]
  - Throat irritation [Recovered/Resolved]
  - Tendon disorder [Recovered/Resolved]
  - Nausea [Unknown]
  - Muscular weakness [Recovering/Resolving]
  - Nail disorder [Unknown]
  - Vomiting [Unknown]
  - Oral mucosal blistering [Recovered/Resolved]
  - Pain [Recovered/Resolved]
  - Hypoaesthesia [Recovering/Resolving]
  - Headache [Not Recovered/Not Resolved]
  - Joint range of motion decreased [Recovered/Resolved]
  - Asthenia [Recovered/Resolved]
  - Urinary retention [Recovered/Resolved]
  - Nasal crusting [Recovered/Resolved]
  - Nasopharyngitis [Not Recovered/Not Resolved]
  - Rhinorrhoea [Recovered/Resolved]
  - Fatigue [Recovered/Resolved]
  - Migraine [Recovered/Resolved]
  - Feeling cold [Not Recovered/Not Resolved]
  - Tachycardia [Recovering/Resolving]
  - Cough [Recovered/Resolved]
  - Cholelithiasis [Recovered/Resolved]
  - Mucosal pain [Recovered/Resolved]
  - Pulmonary embolism [Not Recovered/Not Resolved]
  - Skin irritation [Recovered/Resolved]
  - Bacterial vaginosis [Recovered/Resolved]
  - Mitral valve incompetence [Recovering/Resolving]
  - Tricuspid valve incompetence [Recovering/Resolving]

NARRATIVE: CASE EVENT DATE: 20210316
